FAERS Safety Report 6508502-9 (Version None)
Quarter: 2009Q4

REPORT INFORMATION
  Report Type: 
  Country: None (occurrence: None)
  Receive Date: 20091221
  Receipt Date: 20090120
  Transmission Date: 20100525
  Serious: No
  Sender: FDA-Public Use
  Company Number: US-ASTRAZENECA-2008UW25868

PATIENT
  Age: 24403 Day
  Sex: Female
  Weight: 58.1 kg

DRUGS (7)
  1. CRESTOR [Suspect]
     Indication: BLOOD CHOLESTEROL
     Route: 048
     Dates: start: 20081105
  2. AMIODARONE [Concomitant]
  3. DILTIAZEM [Concomitant]
  4. COUMADIN [Concomitant]
  5. PROTONIX [Concomitant]
  6. ASPIRIN [Concomitant]
  7. SYNTHROID [Concomitant]

REACTIONS (3)
  - EPISTAXIS [None]
  - JOINT SWELLING [None]
  - OEDEMA PERIPHERAL [None]
